FAERS Safety Report 24054824 (Version 2)
Quarter: 2024Q3

REPORT INFORMATION
  Report Type: Spontaneous
  Country: ZA (occurrence: ZA)
  Receive Date: 20240705
  Receipt Date: 20240709
  Transmission Date: 20241016
  Serious: Yes (Other)
  Sender: NOVARTIS
  Company Number: ZA-002147023-NVSC2024ZA137466

PATIENT
  Age: 72 Year
  Sex: Female

DRUGS (1)
  1. COSENTYX [Suspect]
     Active Substance: SECUKINUMAB
     Indication: Psoriatic arthropathy
     Dosage: UNK, QMO
     Route: 058
     Dates: start: 20230801

REACTIONS (11)
  - Pneumonia [Unknown]
  - Infection [Unknown]
  - Immune system disorder [Unknown]
  - Depression [Unknown]
  - Bronchitis [Unknown]
  - H1N1 influenza [Not Recovered/Not Resolved]
  - Malaise [Unknown]
  - Chest pain [Unknown]
  - Asthenia [Unknown]
  - Somnolence [Unknown]
  - Eyelid infection [Unknown]

NARRATIVE: CASE EVENT DATE: 20240501
